FAERS Safety Report 10192002 (Version 1)
Quarter: 2014Q2

REPORT INFORMATION
  Report Type: Spontaneous
  Country: FR (occurrence: FR)
  Receive Date: 20140523
  Receipt Date: 20140523
  Transmission Date: 20141212
  Serious: Yes (Hospitalization)
  Sender: FDA-Public Use
  Company Number: FR-JNJFOC-20140511678

PATIENT
  Age: 77 Year
  Sex: Male

DRUGS (17)
  1. HUMAN CLOTTABLE PROTEIN/HUMAN THROMBIN [Suspect]
     Indication: HAEMOSTASIS
     Route: 061
     Dates: start: 20121119, end: 20121119
  2. ETOMIDATE [Suspect]
     Indication: ANAESTHESIA
     Route: 042
     Dates: start: 20121119, end: 20121119
  3. KARDEGIC [Suspect]
     Indication: CARDIOVASCULAR EVENT PROPHYLAXIS
     Route: 048
  4. PROTAMINE SULFATE [Suspect]
     Indication: PRODUCT USED FOR UNKNOWN INDICATION
     Route: 042
     Dates: start: 20121119, end: 20121119
  5. EXACYL [Suspect]
     Indication: HAEMORRHAGE PROPHYLAXIS
     Route: 042
     Dates: start: 20121119, end: 20121119
  6. KETAMINE PANPHARMA [Suspect]
     Indication: ANAESTHESIA
     Route: 042
     Dates: start: 20121119, end: 20121119
  7. ATARAX [Suspect]
     Indication: PRODUCT USED FOR UNKNOWN INDICATION
     Route: 048
     Dates: start: 20121118, end: 20121119
  8. NIMBEX [Suspect]
     Indication: ANAESTHESIA
     Route: 042
     Dates: start: 20121119, end: 20121119
  9. PROPOFOL LIPURO [Suspect]
     Indication: ANAESTHESIA
     Route: 042
     Dates: start: 20121119, end: 20121119
  10. ZINNAT [Suspect]
     Indication: ANTIBIOTIC PROPHYLAXIS
     Route: 042
     Dates: start: 20121119, end: 20121119
  11. HEPARINE SODIQUE PANPHARMA [Suspect]
     Indication: EXTRACORPOREAL CIRCULATION
     Dosage: 15 000
     Route: 042
     Dates: start: 20121119, end: 20121119
  12. SUFENTANIL [Suspect]
     Indication: ANAESTHESIA
     Route: 042
     Dates: start: 20121119, end: 20121119
  13. CRESTOR [Concomitant]
     Indication: DYSLIPIDAEMIA
     Route: 065
  14. AMLODIPINE [Concomitant]
     Indication: HYPERTENSION
     Route: 065
  15. INEXIUM [Concomitant]
     Indication: PROPHYLAXIS AGAINST GASTROINTESTINAL ULCER
     Route: 048
     Dates: start: 20121118
  16. LASILIX [Concomitant]
     Indication: CARDIAC FAILURE
  17. LOCAL HAEMOSTATICS [Concomitant]
     Indication: HAEMOSTASIS
     Route: 061
     Dates: start: 20121119, end: 20121119

REACTIONS (1)
  - Post procedural haemorrhage [Recovered/Resolved]
